FAERS Safety Report 24133633 (Version 2)
Quarter: 2024Q3

REPORT INFORMATION
  Report Type: Report from Study
  Country: ES (occurrence: ES)
  Receive Date: 20240724
  Receipt Date: 20240809
  Transmission Date: 20241016
  Serious: Yes (Death, Hospitalization)
  Sender: ABBVIE
  Company Number: ES-ABBVIE-5838510

PATIENT
  Sex: Female

DRUGS (3)
  1. CARBIDOPA\LEVODOPA [Suspect]
     Active Substance: CARBIDOPA\LEVODOPA
     Indication: Parkinson^s disease
     Route: 050
     Dates: start: 20230614, end: 202407
  2. CARBIDOPA\LEVODOPA [Suspect]
     Active Substance: CARBIDOPA\LEVODOPA
  3. INBRIJA [Concomitant]
     Active Substance: LEVODOPA
     Indication: Parkinson^s disease
     Route: 055
     Dates: start: 20240711

REACTIONS (10)
  - Metastases to lung [Fatal]
  - Aortic stenosis [Unknown]
  - On and off phenomenon [Not Recovered/Not Resolved]
  - Device kink [Recovered/Resolved]
  - Renal neoplasm [Unknown]
  - Unevaluable event [Unknown]
  - Unevaluable event [Unknown]
  - Vomiting [Not Recovered/Not Resolved]
  - Lipoma [Unknown]
  - Off label use [Unknown]

NARRATIVE: CASE EVENT DATE: 20240101
